FAERS Safety Report 13447328 (Version 1)
Quarter: 2017Q2

REPORT INFORMATION
  Report Type: Spontaneous
  Country: US (occurrence: US)
  Receive Date: 20170414
  Receipt Date: 20170414
  Transmission Date: 20170830
  Serious: Yes (Hospitalization, Disabling)
  Sender: FDA-Public Use
  Company Number: None

PATIENT
  Age: 53 Year
  Sex: Female
  Weight: 57.15 kg

DRUGS (3)
  1. AZITHROMYCIN ANHYDROUS. [Suspect]
     Active Substance: AZITHROMYCIN ANHYDROUS
     Indication: SINUSITIS
     Dosage: ?          QUANTITY:1 TABLET(S);?
     Route: 048
     Dates: start: 20161213, end: 20161213
  2. MULTIVITAMIN [Concomitant]
     Active Substance: VITAMINS
  3. CENTRUM SILVER [Concomitant]
     Active Substance: MINERALS\VITAMINS

REACTIONS (7)
  - Economic problem [None]
  - Burns second degree [None]
  - Scar [None]
  - Photosensitivity reaction [None]
  - Burns third degree [None]
  - Alopecia [None]
  - Visual impairment [None]

NARRATIVE: CASE EVENT DATE: 20161217
